FAERS Safety Report 7551511-1 (Version None)
Quarter: 2011Q2

REPORT INFORMATION
  Report Type: 
  Country: None (occurrence: None)
  Receive Date: 20110616
  Receipt Date: 20110607
  Transmission Date: 20111010
  Serious: Yes (Hospitalization)
  Sender: FDA-Public Use
  Company Number: GB-PFIZER INC-2011071692

PATIENT
  Age: 69 Year
  Sex: Female

DRUGS (1)
  1. PIROXICAM [Suspect]
     Indication: RHEUMATOID ARTHRITIS
     Dosage: 10 MG, 2X/DAY
     Route: 048
     Dates: start: 20091124

REACTIONS (1)
  - MEDICAL DEVICE COMPLICATION [None]
